FAERS Safety Report 23981494 (Version 1)
Quarter: 2024Q2

REPORT INFORMATION
  Report Type: Spontaneous
  Country: US (occurrence: US)
  Receive Date: 20240617
  Receipt Date: 20240617
  Transmission Date: 20240716
  Serious: Yes (Other)
  Sender: FDA-Public Use
  Company Number: US-SA-SAC20240614000063

PATIENT
  Age: 59 Year
  Sex: Female

DRUGS (1)
  1. DUPIXENT [Suspect]
     Active Substance: DUPILUMAB
     Indication: Neurodermatitis
     Dosage: 300 MG, QOW
     Route: 058
     Dates: start: 20240502

REACTIONS (7)
  - Leprosy [Unknown]
  - Decreased appetite [Not Recovered/Not Resolved]
  - Dry mouth [Not Recovered/Not Resolved]
  - Pruritus [Recovering/Resolving]
  - Arthralgia [Not Recovered/Not Resolved]
  - Dialysis [Unknown]
  - Inappropriate schedule of product administration [Unknown]

NARRATIVE: CASE EVENT DATE: 20240101
